FAERS Safety Report 4365689-4 (Version None)
Quarter: 2004Q2

REPORT INFORMATION
  Report Type: 
  Country: None (occurrence: None)
  Receive Date: 20040527
  Receipt Date: 20030529
  Transmission Date: 20050107
  Serious: Yes (Other)
  Sender: FDA-Public Use
  Company Number: PHEH2003US04530

PATIENT
  Age: 65 Year
  Sex: Female
  Weight: 93 kg

DRUGS (11)
  1. ZOMETA [Suspect]
     Dosage: 4 MG, UNK
     Route: 042
     Dates: start: 20030401, end: 20030422
  2. VIOXX [Suspect]
     Dosage: 25 MG, UNK
     Dates: start: 20021113, end: 20030508
  3. E7070 (GOAL) [Suspect]
     Indication: RENAL CELL CARCINOMA STAGE UNSPECIFIED
     Dosage: 1449 MG, OT
     Route: 042
     Dates: start: 20021113, end: 20030530
  4. CO-DIOVAN [Concomitant]
  5. VERAPAMIL [Concomitant]
  6. DURAGESIC [Concomitant]
  7. LIPITOR [Concomitant]
  8. ZOLOFT [Concomitant]
  9. PERCOCET [Concomitant]
  10. PREVACID [Concomitant]
  11. LASIX [Concomitant]

REACTIONS (10)
  - BACK PAIN [None]
  - BLOOD CREATININE INCREASED [None]
  - BLOOD PRESSURE ABNORMAL [None]
  - FEMORAL BRUIT [None]
  - HERPES ZOSTER [None]
  - NOCTURIA [None]
  - OEDEMA PERIPHERAL [None]
  - RENAL FAILURE ACUTE [None]
  - RENAL TUBULAR NECROSIS [None]
  - URINE ANALYSIS ABNORMAL [None]
